FAERS Safety Report 7496064-1 (Version None)
Quarter: 2011Q2

REPORT INFORMATION
  Report Type: 
  Country: None (occurrence: None)
  Receive Date: 20110513
  Receipt Date: 20110504
  Transmission Date: 20111010
  Serious: Yes (Hospitalization)
  Sender: FDA-Public Use
  Company Number: TRP_07706_2011

PATIENT
  Age: 45 Year
  Sex: Female
  Weight: 60 kg

DRUGS (2)
  1. AMPHOTERICIN B [Suspect]
     Indication: COCCIDIOIDOMYCOSIS
     Dosage: DF, INTRAVENOUS (NOT OTHERWISE SPECIFIED)
     Route: 042
  2. FLUCONAZOLE [Suspect]
     Indication: COCCIDIOIDOMYCOSIS
     Dosage: DF, INTRAVENOUS (NOT OTHERSISE SPECIFIED)0
     Route: 042

REACTIONS (16)
  - METABOLIC ACIDOSIS [None]
  - RENAL TUBULAR NECROSIS [None]
  - FUNGAL SEPSIS [None]
  - HAEMODIALYSIS [None]
  - SINUS TACHYCARDIA [None]
  - TREMOR [None]
  - OPERATIVE HAEMORRHAGE [None]
  - RENAL FAILURE ACUTE [None]
  - ACUTE RESPIRATORY FAILURE [None]
  - OEDEMA PERIPHERAL [None]
  - PUPILLARY REFLEX IMPAIRED [None]
  - MULTI-ORGAN FAILURE [None]
  - BODY TEMPERATURE INCREASED [None]
  - NO THERAPEUTIC RESPONSE [None]
  - HYPERHIDROSIS [None]
  - CHROMATURIA [None]
